FAERS Safety Report 16392057 (Version 1)
Quarter: 2019Q2

REPORT INFORMATION
  Report Type: Spontaneous
  Country: US (occurrence: US)
  Receive Date: 20190605
  Receipt Date: 20190605
  Transmission Date: 20190711
  Serious: No
  Sender: FDA-Public Use
  Company Number: US-ROCHE-2238052

PATIENT
  Age: 55 Year
  Sex: Female
  Weight: 118.04 kg

DRUGS (6)
  1. WELLBUTRIN [Concomitant]
     Active Substance: BUPROPION HYDROCHLORIDE
     Indication: DEPRESSION
     Dosage: ONGOING: YES
     Route: 048
     Dates: start: 2008
  2. OCREVUS [Suspect]
     Active Substance: OCRELIZUMAB
     Indication: MULTIPLE SCLEROSIS
     Dosage: FIRST HALF DOSE ;ONGOING: NO
     Route: 042
     Dates: start: 20180615
  3. BOTOX [Concomitant]
     Active Substance: ONABOTULINUMTOXINA
     Indication: CYSTITIS INTERSTITIAL
     Dosage: ONGOING: YES
     Route: 065
  4. OCREVUS [Suspect]
     Active Substance: OCRELIZUMAB
     Dosage: SECOND HALF DOSE ;ONGOING: YES
     Route: 042
     Dates: start: 20180629
  5. BENADRYL [Suspect]
     Active Substance: DIPHENHYDRAMINE HYDROCHLORIDE
     Indication: PRODUCT USED FOR UNKNOWN INDICATION
     Dosage: ONGOING: NO
     Route: 065
  6. LEXAPRO [Concomitant]
     Active Substance: ESCITALOPRAM OXALATE
     Indication: DEPRESSION
     Dosage: ONGOING: YES
     Route: 048
     Dates: start: 2000

REACTIONS (3)
  - Somnolence [Unknown]
  - Fear [Not Recovered/Not Resolved]
  - Pollakiuria [Recovered/Resolved]

NARRATIVE: CASE EVENT DATE: 20180615
